FAERS Safety Report 19719763 (Version 1)
Quarter: 2021Q3

REPORT INFORMATION
  Report Type: Spontaneous
  Country: GB (occurrence: GB)
  Receive Date: 20210819
  Receipt Date: 20210819
  Transmission Date: 20211014
  Serious: Yes (Death)
  Sender: FDA-Public Use
  Company Number: GB-MYLANLABS-2021M1052684

PATIENT
  Sex: Male

DRUGS (1)
  1. ISOTRETINOIN. [Suspect]
     Active Substance: ISOTRETINOIN
     Indication: ACNE
     Dosage: UNK
     Route: 065

REACTIONS (8)
  - Mental disorder [Unknown]
  - Suicidal ideation [Fatal]
  - Depersonalisation/derealisation disorder [Unknown]
  - Depressed mood [Unknown]
  - Ill-defined disorder [Unknown]
  - Sexual dysfunction [Unknown]
  - Akathisia [Unknown]
  - Blood testosterone decreased [Unknown]
